FAERS Safety Report 9281754 (Version 2)
Quarter: 2014Q1

REPORT INFORMATION
  Report Type: Spontaneous
  Country: US (occurrence: US)
  Receive Date: 20130510
  Receipt Date: 20140109
  Transmission Date: 20141002
  Serious: Yes (Hospitalization)
  Sender: FDA-Public Use
  Company Number: US-B.I. PHARMACEUTICALS,INC./RIDGEFIELD-2013-BI-12727BP

PATIENT
  Age: 73 Year
  Sex: Female
  Weight: 61.23 kg

DRUGS (9)
  1. PRADAXA [Suspect]
     Indication: ATRIAL FIBRILLATION
     Dosage: 150 MG
     Route: 048
     Dates: start: 20110307, end: 20110502
  2. ATENOLOL [Concomitant]
     Dosage: 75 MG
     Dates: start: 2001, end: 2011
  3. SYNTHROID [Concomitant]
     Dosage: 50 MCG
     Route: 048
  4. PRAVASTATIN [Concomitant]
     Dosage: 20 MG
     Route: 048
  5. NORVASC [Concomitant]
     Dosage: 5 MG
     Route: 048
  6. ASPIRIN [Concomitant]
     Dosage: 81 MG
     Route: 048
  7. FISH OIL [Concomitant]
     Route: 048
  8. MALTESE [Concomitant]
     Dosage: 800 MG
     Route: 048
  9. MULTAQ [Concomitant]
     Dates: start: 201104, end: 201210

REACTIONS (2)
  - Upper gastrointestinal haemorrhage [Unknown]
  - Anaemia [Unknown]
